FAERS Safety Report 7479890-4 (Version None)
Quarter: 2011Q2

REPORT INFORMATION
  Report Type: 
  Country: None (occurrence: None)
  Receive Date: 20110516
  Receipt Date: 20110512
  Transmission Date: 20111010
  Serious: Yes (Hospitalization, Other)
  Sender: FDA-Public Use
  Company Number: AT-BRISTOL-MYERS SQUIBB COMPANY-15740350

PATIENT
  Age: 73 Year
  Sex: Female

DRUGS (2)
  1. ABILIFY [Suspect]
     Indication: BIPOLAR DISORDER
     Dosage: INITIALLY GIVEN DOSE 10MG,THEN INCREASED TO 15MG
     Route: 048
     Dates: start: 20101001
  2. VALPROATE SODIUM [Concomitant]
     Route: 048

REACTIONS (2)
  - PSYCHOTIC DISORDER [None]
  - MANIA [None]
